FAERS Safety Report 7938651-X (Version None)
Quarter: 2011Q4

REPORT INFORMATION
  Report Type: 
  Country: None (occurrence: None)
  Receive Date: 20111123
  Receipt Date: 20111122
  Transmission Date: 20120403
  Serious: Yes (Hospitalization)
  Sender: FDA-Public Use
  Company Number: IT-MERCK-1111ITA00035

PATIENT
  Age: 72 Year
  Sex: Female

DRUGS (6)
  1. FUROSEMIDE AND SPIRONOLACTONE [Suspect]
     Indication: CARDIAC FAILURE
     Route: 048
     Dates: start: 20080101
  2. IRON (UNSPECIFIED) [Concomitant]
     Indication: IRON DEFICIENCY
     Route: 048
     Dates: start: 20080101, end: 20111105
  3. FUROSEMIDE SODIUM [Suspect]
     Indication: CARDIAC FAILURE
     Route: 048
     Dates: start: 20080101
  4. COZAAR [Suspect]
     Indication: CARDIAC FAILURE
     Route: 048
     Dates: start: 20080101
  5. DIGOXIN [Concomitant]
     Indication: ATRIAL FIBRILLATION
     Route: 048
     Dates: start: 20080101, end: 20111105
  6. WARFARIN SODIUM [Suspect]
     Indication: CARDIAC VALVE PROSTHESIS USER
     Route: 048
     Dates: start: 20080101, end: 20111105

REACTIONS (2)
  - MELAENA [None]
  - ANAEMIA [None]
